FAERS Safety Report 23586675 (Version 1)
Quarter: 2024Q1

REPORT INFORMATION
  Report Type: Spontaneous
  Country: CN (occurrence: CN)
  Receive Date: 20240301
  Receipt Date: 20240301
  Transmission Date: 20240409
  Serious: Yes (Other)
  Sender: FDA-Public Use
  Company Number: CN-BAT-2024BAT000055

PATIENT
  Age: 77 Year
  Sex: Male
  Weight: 72.0 kg

DRUGS (2)
  1. TOFIDENCE [Suspect]
     Active Substance: TOCILIZUMAB-BAVI
     Indication: Infection
     Dosage: ONE SINGLE DOSE
     Route: 041
     Dates: start: 20240209, end: 20240209
  2. SODIUM CHLORIDE [Concomitant]
     Active Substance: SODIUM CHLORIDE
     Indication: Vehicle solution use
     Dosage: 1 SINGLE DOSE
     Route: 041
     Dates: start: 20240209, end: 20240209

REACTIONS (5)
  - Abdominal pain [Recovering/Resolving]
  - Asthenia [Recovering/Resolving]
  - Rales [Recovering/Resolving]
  - Anaphylactic shock [Recovering/Resolving]
  - Product use in unapproved indication [Recovering/Resolving]

NARRATIVE: CASE EVENT DATE: 20240209
